FAERS Safety Report 24437692 (Version 1)
Quarter: 2024Q4

REPORT INFORMATION
  Report Type: Spontaneous
  Country: US (occurrence: None)
  Receive Date: 20241011
  Receipt Date: 20241011
  Transmission Date: 20250114
  Serious: Yes (Hospitalization)
  Sender: Public
  Company Number: None

PATIENT
  Age: 62 Year
  Sex: Male
  Weight: 91.6 kg

DRUGS (9)
  1. TACROLIMUS [Suspect]
     Active Substance: TACROLIMUS
     Indication: Pancreas transplant
     Dosage: FREQUENCY : TWICE A DAY;?
     Route: 048
     Dates: start: 20240206, end: 20241009
  2. TACROLIMUS [Suspect]
     Active Substance: TACROLIMUS
     Indication: Pancreas transplant
     Dosage: FREQUENCY : DAILY;?
     Route: 048
     Dates: start: 20240206, end: 20241009
  3. MYCOPHENOLATE 500MG [Concomitant]
  4. ATORVASTATIN 10MG TABS [Concomitant]
  5. GABAPENTIN 100MG CAPS [Concomitant]
  6. METOPROLOL TARTRATE 25MG TABS [Concomitant]
  7. PREDNISONE 5MG TABS [Concomitant]
  8. PREVYMIS 480 MG TABS [Concomitant]
  9. SULFAMETH/TRIMETH 400-80 [Concomitant]

REACTIONS (1)
  - Neurotoxicity [None]

NARRATIVE: CASE EVENT DATE: 20241009
